FAERS Safety Report 20245732 (Version 2)
Quarter: 2022Q1

REPORT INFORMATION
  Report Type: Spontaneous
  Country: CN (occurrence: None)
  Receive Date: 20211229
  Receipt Date: 20220111
  Transmission Date: 20220424
  Serious: Yes (Other)
  Sender: FDA-Public Use
  Company Number: 2021A899140

PATIENT
  Age: 24837 Day
  Sex: Male
  Weight: 47 kg

DRUGS (3)
  1. QUETIAPINE FUMARATE [Suspect]
     Active Substance: QUETIAPINE FUMARATE
     Indication: Respiratory failure
     Route: 048
     Dates: start: 20211218, end: 20211218
  2. GABAPENTIN [Suspect]
     Active Substance: GABAPENTIN
     Indication: Neuralgia
     Route: 048
     Dates: start: 20211218, end: 20211218
  3. OXYGEN INHALATION [Concomitant]
     Route: 055

REACTIONS (3)
  - Disorganised speech [Recovering/Resolving]
  - Heart rate increased [Recovering/Resolving]
  - Irritability [Unknown]

NARRATIVE: CASE EVENT DATE: 20211218
